FAERS Safety Report 9271726 (Version 1)
Quarter: 2013Q2

REPORT INFORMATION
  Report Type: Report from Study
  Country: TN (occurrence: TN)
  Receive Date: 20130506
  Receipt Date: 20130506
  Transmission Date: 20140414
  Serious: Yes (Death)
  Sender: FDA-Public Use
  Company Number: TN-SANOFI-AVENTIS-2013SA043696

PATIENT
  Age: 66 Year
  Sex: Male

DRUGS (6)
  1. CLOPIDOGREL BISULFATE [Suspect]
     Indication: MYOCARDIAL INFARCTION
     Route: 048
     Dates: start: 20120101, end: 20130124
  2. CLOPIDOGREL BISULFATE [Suspect]
     Indication: CORONARY ARTERIAL STENT INSERTION
     Route: 048
     Dates: start: 20120101, end: 20130124
  3. ASPEGIC [Concomitant]
     Route: 048
     Dates: end: 20130124
  4. BISOPROLOL [Concomitant]
     Route: 048
     Dates: end: 20130124
  5. CAPTOPRIL [Concomitant]
     Route: 048
     Dates: end: 20130124
  6. ATORVASTATIN [Concomitant]
     Route: 048
     Dates: end: 20130124

REACTIONS (2)
  - Renal cancer [Fatal]
  - Condition aggravated [Fatal]
